FAERS Safety Report 9961747 (Version 1)
Quarter: 2014Q1

REPORT INFORMATION
  Report Type: Report from Study
  Country: US (occurrence: US)
  Receive Date: 20140305
  Receipt Date: 20140305
  Transmission Date: 20141002
  Serious: No
  Sender: FDA-Public Use
  Company Number: US-ABBVIE-13P-163-1113236-00

PATIENT
  Age: 30 Year
  Sex: Male

DRUGS (6)
  1. HUMIRA [Suspect]
     Indication: COLITIS ULCERATIVE
     Dates: start: 20130103
  2. VITAMIN D PLUS CA+ [Concomitant]
     Indication: VITAMIN SUPPLEMENTATION
     Route: 048
  3. GAS X [Concomitant]
     Indication: ABDOMINAL DISTENSION
     Route: 048
  4. GAS X [Concomitant]
     Indication: FLATULENCE
  5. GAS X [Concomitant]
     Indication: COLITIS ULCERATIVE
  6. IMODIUM [Concomitant]
     Indication: PRODUCT USED FOR UNKNOWN INDICATION

REACTIONS (2)
  - Colitis ulcerative [Not Recovered/Not Resolved]
  - Drug ineffective [Not Recovered/Not Resolved]
